FAERS Safety Report 15660822 (Version 1)
Quarter: 2018Q4

REPORT INFORMATION
  Report Type: Spontaneous
  Country: US (occurrence: US)
  Receive Date: 20181127
  Receipt Date: 20181127
  Transmission Date: 20190205
  Serious: No
  Sender: FDA-Public Use
  Company Number: US-TEVA-2017-US-839829

PATIENT
  Sex: Male

DRUGS (1)
  1. AZITHROMYCIN ANHYDROUS. [Suspect]
     Active Substance: AZITHROMYCIN ANHYDROUS
     Indication: INFECTION
     Dosage: STRENGTH: 200MG/5ML 22.5 ML
     Route: 048
     Dates: start: 20171210

REACTIONS (2)
  - Hypoaesthesia oral [Unknown]
  - Infective glossitis [Unknown]

NARRATIVE: CASE EVENT DATE: 20171213
